FAERS Safety Report 6695509-4 (Version None)
Quarter: 2010Q2

REPORT INFORMATION
  Report Type: 
  Country: None (occurrence: None)
  Receive Date: 20100426
  Receipt Date: 20100419
  Transmission Date: 20101027
  Serious: Yes (Hospitalization)
  Sender: FDA-Public Use
  Company Number: US-BIOGENIDEC-2009BI038451

PATIENT
  Age: 43 Year
  Sex: Female
  Weight: 108 kg

DRUGS (2)
  1. AVONEX [Suspect]
     Indication: MULTIPLE SCLEROSIS
     Route: 030
     Dates: start: 20080301
  2. AVONEX [Suspect]
     Route: 030
     Dates: start: 20090101, end: 20091201

REACTIONS (14)
  - AMNESIA [None]
  - CONVULSION [None]
  - CROHN'S DISEASE [None]
  - CRYING [None]
  - DECREASED APPETITE [None]
  - DIARRHOEA [None]
  - FAECAL INCONTINENCE [None]
  - IMMUNE SYSTEM DISORDER [None]
  - INSOMNIA [None]
  - MULTIPLE SCLEROSIS RELAPSE [None]
  - PERIODONTAL DISEASE [None]
  - RENAL DISORDER [None]
  - WEIGHT DECREASED [None]
  - WEIGHT INCREASED [None]
